FAERS Safety Report 8994870 (Version 1)
Quarter: 2013Q1

REPORT INFORMATION
  Report Type: Spontaneous
  Country: US (occurrence: US)
  Receive Date: 20130102
  Receipt Date: 20130102
  Transmission Date: 20140127
  Serious: No
  Sender: FDA-Public Use
  Company Number: US-AMGEN-USASP2012078209

PATIENT
  Age: 64 Year
  Sex: Female

DRUGS (3)
  1. ENBREL [Suspect]
     Indication: PRODUCT USED FOR UNKNOWN INDICATION
     Dosage: 50 MG, QWK
  2. METHOTREXATE [Concomitant]
     Dosage: 2.5 MG 6 TABS WEEKLY, UNK
     Dates: start: 2007
  3. METHOTREXATE [Concomitant]
     Dates: start: 2008

REACTIONS (1)
  - Rheumatoid arthritis [Not Recovered/Not Resolved]
